FAERS Safety Report 25911966 (Version 1)
Quarter: 2025Q4

REPORT INFORMATION
  Report Type: Spontaneous
  Country: US (occurrence: US)
  Receive Date: 20251013
  Receipt Date: 20251013
  Transmission Date: 20260117
  Serious: No
  Sender: RANBAXY
  Company Number: US-MIMS-SUN-2025-USA-54548

PATIENT
  Sex: Female

DRUGS (3)
  1. WINLEVI [Suspect]
     Active Substance: CLASCOTERONE
     Indication: Acne
     Route: 065
  2. Laurien [Concomitant]
     Indication: Product used for unknown indication
     Dosage: UNK
     Route: 065
  3. SAPONINS [Concomitant]
     Active Substance: SAPONINS
     Indication: Product used for unknown indication
     Dosage: UNK
     Route: 065

REACTIONS (2)
  - Product physical consistency issue [Unknown]
  - Poor quality product administered [Unknown]
